FAERS Safety Report 14783927 (Version 1)
Quarter: 2018Q2

REPORT INFORMATION
  Report Type: Spontaneous
  Country: US (occurrence: US)
  Receive Date: 20180413
  Receipt Date: 20180413
  Transmission Date: 20180711
  Serious: No
  Sender: FDA-Public Use
  Company Number: None

PATIENT
  Age: 61 Year
  Sex: Female
  Weight: 101.25 kg

DRUGS (10)
  1. IPRATROPIUM BROMIDE AND ALBUTEROL SULFATE 0.5MG/3MG PER 3 ML. [Suspect]
     Active Substance: ALBUTEROL SULFATE\IPRATROPIUM BROMIDE
     Indication: DYSPNOEA
     Dosage: ?          QUANTITY:1 VIAL;?
  2. LATANAPROSE [Concomitant]
  3. OXYGEN. [Concomitant]
     Active Substance: OXYGEN
  4. BROMONIDINE DORZOLAMIDE [Concomitant]
  5. IPRATROPIUM BROMIDE AND ALBUTEROL SULFATE 0.5MG/3MG PER 3 ML. [Suspect]
     Active Substance: ALBUTEROL SULFATE\IPRATROPIUM BROMIDE
     Indication: ASTHMA
     Dosage: ?          QUANTITY:1 VIAL;?
  6. PREDNISONE. [Concomitant]
     Active Substance: PREDNISONE
  7. LASIX [Concomitant]
     Active Substance: FUROSEMIDE
  8. ALBUTEROL INHALER [Concomitant]
     Active Substance: ALBUTEROL
  9. RANITADUBE [Concomitant]
  10. VITAMIN D [Concomitant]
     Active Substance: CHOLECALCIFEROL

REACTIONS (3)
  - Product odour abnormal [None]
  - Throat irritation [None]
  - Lip swelling [None]

NARRATIVE: CASE EVENT DATE: 20180214
